FAERS Safety Report 15775628 (Version 3)
Quarter: 2019Q2

REPORT INFORMATION
  Report Type: Spontaneous
  Country: CA (occurrence: CA)
  Receive Date: 20181231
  Receipt Date: 20190502
  Transmission Date: 20190711
  Serious: Yes (Other)
  Sender: FDA-Public Use
  Company Number: CA-ORION CORPORATION ORION PHARMA-TREX2018-3920

PATIENT
  Age: 72 Year
  Sex: Male

DRUGS (25)
  1. METHOTREXATE (TRADE NAME UNKNOWN) [Suspect]
     Active Substance: METHOTREXATE
     Route: 065
     Dates: start: 2009
  2. SULFASALAZINE. [Concomitant]
     Active Substance: SULFASALAZINE
     Indication: RHEUMATOID ARTHRITIS
     Route: 065
     Dates: start: 1999, end: 2004
  3. TERAZOSIN [Concomitant]
     Active Substance: TERAZOSIN\TERAZOSIN HYDROCHLORIDE
     Route: 065
     Dates: start: 20160831
  4. FERROUS POLYSACCHARIDE [Concomitant]
     Route: 065
  5. LEFLUNOMIDE. [Concomitant]
     Active Substance: LEFLUNOMIDE
     Route: 065
     Dates: start: 2009
  6. RITUXAN [Concomitant]
     Active Substance: RITUXIMAB
     Route: 065
     Dates: start: 2008
  7. METOPROLOL. [Concomitant]
     Active Substance: METOPROLOL
     Route: 065
     Dates: start: 20160831
  8. ASA [Concomitant]
     Active Substance: ASPIRIN
     Route: 065
     Dates: start: 20170728
  9. METHOTREXATE (TRADE NAME UNKNOWN) [Suspect]
     Active Substance: METHOTREXATE
     Indication: PRODUCT USED FOR UNKNOWN INDICATION
     Route: 065
     Dates: start: 1999, end: 2004
  10. PLAQUENIL [Concomitant]
     Active Substance: HYDROXYCHLOROQUINE SULFATE
     Route: 065
     Dates: start: 2013
  11. FUROSEMIDE. [Concomitant]
     Active Substance: FUROSEMIDE
     Route: 065
     Dates: start: 20160713
  12. FERAMAX 150 [Concomitant]
     Route: 065
     Dates: start: 20130906
  13. HYDROXYCHLOROQUINE [Concomitant]
     Active Substance: HYDROXYCHLOROQUINE
     Route: 065
  14. ATROVENT [Concomitant]
     Active Substance: IPRATROPIUM BROMIDE
     Route: 065
     Dates: start: 20180122
  15. ZOPICLONE [Concomitant]
     Active Substance: ZOPICLONE
     Route: 065
  16. PANTOPRAZOLE [Concomitant]
     Active Substance: PANTOPRAZOLE
     Route: 065
     Dates: start: 20130529
  17. HYDRALAZINE [Concomitant]
     Active Substance: HYDRALAZINE HYDROCHLORIDE
     Route: 065
     Dates: start: 20160713
  18. SODIUM BICARBONATE. [Concomitant]
     Active Substance: SODIUM BICARBONATE
     Route: 065
  19. ROSUVASTATIN. [Concomitant]
     Active Substance: ROSUVASTATIN
     Route: 065
  20. VENTOLIN [Concomitant]
     Active Substance: ALBUTEROL SULFATE
     Route: 065
     Dates: start: 20120910
  21. COMBIVENT RESPIMAT [Concomitant]
     Active Substance: ALBUTEROL SULFATE\IPRATROPIUM BROMIDE
     Route: 065
     Dates: start: 20190111
  22. ENBREL [Concomitant]
     Active Substance: ETANERCEPT
     Indication: RHEUMATOID ARTHRITIS
     Route: 065
     Dates: start: 2006, end: 2007
  23. METHOTREXATE (TRADE NAME UNKNOWN) [Suspect]
     Active Substance: METHOTREXATE
     Route: 065
     Dates: start: 2006, end: 2007
  24. KAYEXALATE [Concomitant]
     Active Substance: SODIUM POLYSTYRENE SULFONATE
     Route: 065
     Dates: start: 20140829
  25. SYMBICORT [Concomitant]
     Active Substance: BUDESONIDE\FORMOTEROL FUMARATE DIHYDRATE
     Route: 065
     Dates: start: 20171227

REACTIONS (29)
  - Myocardial infarction [Unknown]
  - Chronic obstructive pulmonary disease [Unknown]
  - Abdominal pain upper [Unknown]
  - Peripheral venous disease [Unknown]
  - Renal failure [Unknown]
  - Aortic aneurysm repair [Unknown]
  - Wound infection [Unknown]
  - Rheumatoid arthritis [Not Recovered/Not Resolved]
  - Back pain [Unknown]
  - Renal aneurysm [Unknown]
  - Cervical spinal stenosis [Unknown]
  - Lumbar hernia [Recovered/Resolved]
  - Cervical radiculopathy [Unknown]
  - Pneumonia [Unknown]
  - Synovial disorder [Unknown]
  - Gait disturbance [Unknown]
  - Malaise [Unknown]
  - Inguinal hernia [Unknown]
  - Postoperative wound infection [Unknown]
  - Coronary artery disease [Unknown]
  - Dysuria [Unknown]
  - Periarthritis [Unknown]
  - Asthma-chronic obstructive pulmonary disease overlap syndrome [Unknown]
  - Diverticulum [Unknown]
  - Peripheral vascular disorder [Unknown]
  - Pain in extremity [Unknown]
  - Pancytopenia [Unknown]
  - Peripheral artery occlusion [Unknown]
  - Intermittent claudication [Unknown]

NARRATIVE: CASE EVENT DATE: 1999
